FAERS Safety Report 7347982-6 (Version None)
Quarter: 2011Q1

REPORT INFORMATION
  Report Type: 
  Country: None (occurrence: None)
  Receive Date: 20110311
  Receipt Date: 20100908
  Transmission Date: 20110831
  Serious: Yes (Hospitalization)
  Sender: FDA-Public Use
  Company Number: US-BAYER-201019692NA

PATIENT
  Sex: Female
  Weight: 155 kg

DRUGS (3)
  1. YAZ [Suspect]
     Indication: PRODUCT USED FOR UNKNOWN INDICATION
     Dosage: UNK
     Route: 048
  2. YASMIN [Suspect]
     Indication: PRODUCT USED FOR UNKNOWN INDICATION
     Dosage: UNK
     Route: 048
     Dates: start: 20050601, end: 20080201
  3. VALTREX [Concomitant]
     Indication: HERPES VIRUS INFECTION
     Dosage: UNK
     Route: 048
     Dates: start: 20050815, end: 20061016

REACTIONS (5)
  - DEEP VEIN THROMBOSIS [None]
  - PULMONARY INFARCTION [None]
  - PAIN IN EXTREMITY [None]
  - DYSPNOEA [None]
  - PULMONARY EMBOLISM [None]
